FAERS Safety Report 4688871-5 (Version None)
Quarter: 2005Q2

REPORT INFORMATION
  Report Type: 
  Country: None (occurrence: None)
  Receive Date: 20050607
  Receipt Date: 20050525
  Transmission Date: 20051028
  Serious: Yes (Hospitalization)
  Sender: FDA-Public Use
  Company Number: 603896

PATIENT
  Age: 76 Year
  Sex: Female

DRUGS (1)
  1. GAMMAGARD S/D [Suspect]
     Dosage: IV
     Route: 042
     Dates: start: 20050523, end: 20050523

REACTIONS (4)
  - BLINDNESS UNILATERAL [None]
  - BLOOD PRESSURE INCREASED [None]
  - SIMILAR REACTION ON PREVIOUS EXPOSURE TO DRUG [None]
  - VISION BLURRED [None]
